FAERS Safety Report 6096922-9 (Version None)
Quarter: 2009Q1

REPORT INFORMATION
  Report Type: 
  Country: None (occurrence: None)
  Receive Date: 20090223
  Receipt Date: 20080109
  Transmission Date: 20090719
  Serious: Yes (Hospitalization)
  Sender: FDA-Public Use
  Company Number: WAES 0801USA02274

PATIENT
  Age: 67 Year
  Sex: Male
  Weight: 66.6788 kg

DRUGS (2)
  1. ZOCOR [Suspect]
     Indication: HYPERLIPIDAEMIA
  2. PLETAL [Suspect]

REACTIONS (1)
  - HEPATIC ENZYME INCREASED [None]
